FAERS Safety Report 9267964 (Version 1)
Quarter: 2013Q2

REPORT INFORMATION
  Report Type: Spontaneous
  Country: None (occurrence: NO)
  Receive Date: 20130502
  Receipt Date: 20130502
  Transmission Date: 20140414
  Serious: Yes (Life-Threatening, Hospitalization)
  Sender: FDA-Public Use
  Company Number: NO-EISAI INC-E2020-12277-SPO-NO

PATIENT
  Sex: Female

DRUGS (7)
  1. DONEPEZIL [Suspect]
     Indication: DEMENTIA ALZHEIMER^S TYPE
     Route: 048
     Dates: start: 20130304, end: 20130401
  2. DONEPEZIL [Interacting]
     Route: 048
     Dates: start: 20130402, end: 20130411
  3. METOPROLOL [Interacting]
     Indication: HYPERTENSION
     Dosage: UNKNOWN
     Route: 048
  4. METOPROLOL [Interacting]
     Dosage: 200 MG DAILY
     Route: 048
     Dates: end: 20130411
  5. ALENDRONIC ACID [Concomitant]
  6. ACESISTEM [Concomitant]
  7. OVERSTERIN [Concomitant]

REACTIONS (8)
  - Atrioventricular block complete [Not Recovered/Not Resolved]
  - Bradycardia [Not Recovered/Not Resolved]
  - Chest pain [Not Recovered/Not Resolved]
  - Nausea [Not Recovered/Not Resolved]
  - Dyspnoea [Not Recovered/Not Resolved]
  - Fatigue [Unknown]
  - Decreased appetite [Unknown]
  - Drug interaction [Not Recovered/Not Resolved]
